FAERS Safety Report 6488324-8 (Version None)
Quarter: 2009Q4

REPORT INFORMATION
  Report Type: 
  Country: None (occurrence: None)
  Receive Date: 20091210
  Receipt Date: 20090830
  Transmission Date: 20100525
  Serious: No
  Sender: FDA-Public Use
  Company Number: US-AMGEN-KDL362441

PATIENT
  Sex: Male

DRUGS (2)
  1. ENBREL [Suspect]
     Indication: PSORIATIC ARTHROPATHY
     Route: 058
     Dates: start: 20030331
  2. ENBREL [Suspect]
     Indication: PSORIASIS

REACTIONS (6)
  - EXOSTOSIS [None]
  - JOINT INSTABILITY [None]
  - LOCALISED INFECTION [None]
  - PARAESTHESIA [None]
  - ROTATOR CUFF SYNDROME [None]
  - TENDON PAIN [None]
